FAERS Safety Report 20222494 (Version 1)
Quarter: 2021Q4

REPORT INFORMATION
  Report Type: Spontaneous
  Country: US (occurrence: US)
  Receive Date: 20211223
  Receipt Date: 20211223
  Transmission Date: 20220304
  Serious: No
  Sender: FDA-Public Use
  Company Number: US-BRISTOL-MYERS SQUIBB COMPANY-BMS-2021-140903

PATIENT
  Age: 54 Year
  Sex: Female

DRUGS (4)
  1. KENALOG-40 [Suspect]
     Active Substance: TRIAMCINOLONE ACETONIDE
     Indication: Pain
     Dosage: STRENGTH: 40 MG/ML,40MG/HIP JOINT X 4 DOSES/HIP
     Route: 014
     Dates: start: 202012
  2. KENALOG-40 [Suspect]
     Active Substance: TRIAMCINOLONE ACETONIDE
     Dosage: 80 MILLIGRAM
     Route: 014
     Dates: start: 202104
  3. KENALOG-40 [Suspect]
     Active Substance: TRIAMCINOLONE ACETONIDE
     Dosage: 80 MILLIGRAM
     Route: 014
     Dates: start: 202107
  4. KENALOG-40 [Suspect]
     Active Substance: TRIAMCINOLONE ACETONIDE
     Dosage: 80 MILLIGRAM
     Route: 014
     Dates: start: 20211207

REACTIONS (4)
  - Renal pain [Unknown]
  - Groin pain [Unknown]
  - Headache [Unknown]
  - Hypersensitivity [Unknown]

NARRATIVE: CASE EVENT DATE: 20211209
